FAERS Safety Report 8022620-8 (Version None)
Quarter: 2012Q1

REPORT INFORMATION
  Report Type: 
  Country: None (occurrence: None)
  Receive Date: 20120104
  Receipt Date: 20111219
  Transmission Date: 20120608
  Serious: Yes (Death)
  Sender: FDA-Public Use
  Company Number: JP-GLAXOSMITHKLINE-B0770976A

PATIENT
  Sex: Male

DRUGS (10)
  1. ARRANON [Suspect]
     Dosage: 650MGM2 PER DAY
     Route: 042
     Dates: start: 20110322, end: 20110322
  2. CYCLOPHOSPHAMIDE [Suspect]
     Indication: T-CELL TYPE ACUTE LEUKAEMIA
     Route: 065
     Dates: start: 20110101, end: 20110101
  3. ETOPOSIDE [Concomitant]
     Dosage: 100MGM2 PER DAY
     Dates: start: 20110322, end: 20110322
  4. FLUDARABINE PHOSPHATE [Concomitant]
     Indication: CORD BLOOD TRANSPLANT THERAPY
     Dosage: 30MGM2 PER DAY
     Dates: start: 20110228, end: 20110228
  5. ETOPOSIDE [Concomitant]
     Indication: T-CELL TYPE ACUTE LEUKAEMIA
     Dosage: 100MGM2 PER DAY
     Dates: start: 20110228, end: 20110228
  6. FLUDARABINE PHOSPHATE [Concomitant]
     Dosage: 30MGM2 PER DAY
     Dates: start: 20110322, end: 20110322
  7. CYTARABINE [Concomitant]
     Indication: CORD BLOOD TRANSPLANT THERAPY
     Dates: start: 20110101, end: 20110101
  8. MELPHALAN HYDROCHLORIDE [Concomitant]
     Indication: CORD BLOOD TRANSPLANT THERAPY
     Dates: start: 20110101, end: 20110101
  9. ARRANON [Suspect]
     Indication: T-CELL TYPE ACUTE LEUKAEMIA
     Dosage: 650MGM2 PER DAY
     Route: 042
     Dates: start: 20110228, end: 20110228
  10. BORTEZOMIB [Suspect]
     Indication: T-CELL TYPE ACUTE LEUKAEMIA
     Route: 065
     Dates: start: 20110101, end: 20110101

REACTIONS (15)
  - NUCLEAR MAGNETIC RESONANCE IMAGING ABNORMAL [None]
  - FALL [None]
  - MONOPLEGIA [None]
  - NERVOUS SYSTEM DISORDER [None]
  - NERVE CONDUCTION STUDIES ABNORMAL [None]
  - MOVEMENT DISORDER [None]
  - MUSCLE ATROPHY [None]
  - AREFLEXIA [None]
  - DYSPNOEA [None]
  - DECREASED VIBRATORY SENSE [None]
  - RESPIRATORY ARREST [None]
  - MUSCULAR WEAKNESS [None]
  - SENSORY DISTURBANCE [None]
  - HYPOAESTHESIA [None]
  - GAIT DISTURBANCE [None]
